FAERS Safety Report 12462452 (Version 1)
Quarter: 2016Q2

REPORT INFORMATION
  Report Type: Spontaneous
  Country: US (occurrence: US)
  Receive Date: 20160614
  Receipt Date: 20160614
  Transmission Date: 20160815
  Serious: No
  Sender: FDA-Public Use
  Company Number: US-ACCORD-034691

PATIENT
  Age: 68 Year
  Sex: Female
  Weight: 52.28 kg

DRUGS (1)
  1. CLONAZEPAM ACCORD [Suspect]
     Active Substance: CLONAZEPAM
     Indication: SLEEP DISORDER
     Dosage: STRENGTH: 0.5 MG ?BID (6 PM AND 11 PM)
     Route: 048
     Dates: start: 20151009

REACTIONS (4)
  - Off label use [Unknown]
  - Fatigue [Not Recovered/Not Resolved]
  - Drug ineffective [Not Recovered/Not Resolved]
  - Product substitution issue [Unknown]

NARRATIVE: CASE EVENT DATE: 201510
